FAERS Safety Report 19969109 (Version 1)
Quarter: 2021Q4

REPORT INFORMATION
  Report Type: Spontaneous
  Country: US (occurrence: US)
  Receive Date: 20211019
  Receipt Date: 20211019
  Transmission Date: 20220303
  Serious: No
  Sender: FDA-Public Use
  Company Number: US-UROGEN PHARMA LTD.-2021-UGN-000049

PATIENT
  Sex: Male

DRUGS (2)
  1. JELMYTO [Suspect]
     Active Substance: MITOMYCIN
     Indication: Transitional cell cancer of the renal pelvis and ureter
     Dosage: 1 TIMES PER WEEK (INSTILLATION)
     Dates: start: 20210706, end: 20210706
  2. JELMYTO [Suspect]
     Active Substance: MITOMYCIN
     Dosage: 1 TIMES PER WEEK, 15CC (INSTILLATION)
     Dates: start: 20210713, end: 20210713

REACTIONS (1)
  - Stenosis [Unknown]

NARRATIVE: CASE EVENT DATE: 20210713
